FAERS Safety Report 7420814-3 (Version None)
Quarter: 2011Q2

REPORT INFORMATION
  Report Type: 
  Country: None (occurrence: None)
  Receive Date: 20110418
  Receipt Date: 20110414
  Transmission Date: 20111010
  Serious: Yes (Other)
  Sender: FDA-Public Use
  Company Number: A0922980A

PATIENT
  Age: 52 Year
  Sex: Female

DRUGS (1)
  1. TARGET NTS 21MG [Suspect]
     Indication: SMOKING CESSATION THERAPY
     Route: 062
     Dates: start: 20110412, end: 20110414

REACTIONS (4)
  - APPLICATION SITE PAIN [None]
  - APPLICATION SITE ANAESTHESIA [None]
  - APPLICATION SITE PARAESTHESIA [None]
  - MYOCARDIAL INFARCTION [None]
